FAERS Safety Report 8539766-8 (Version None)
Quarter: 2012Q3

REPORT INFORMATION
  Report Type: 
  Country: None (occurrence: None)
  Receive Date: 20120726
  Receipt Date: 20120718
  Transmission Date: 20120928
  Serious: Yes (Other)
  Sender: FDA-Public Use
  Company Number: US-ASTRAZENECA-2008UW00430

PATIENT
  Age: 68 Year
  Sex: Female
  Weight: 90.7 kg

DRUGS (8)
  1. CRESTOR [Suspect]
     Route: 048
  2. ATENOLOL [Concomitant]
     Indication: BLOOD PRESSURE INCREASED
     Route: 048
  3. GUAIFENESIN [Concomitant]
     Indication: COUGH
     Dosage: AS REQUIRED
  4. ARIMIDEX [Suspect]
     Indication: BREAST CANCER
     Route: 048
     Dates: start: 20071001
  5. ELAVIL [Concomitant]
  6. PEPCID [Concomitant]
  7. TYLENOL ARTHRITIS [Concomitant]
     Dosage: AS REQUIRED
  8. ATIVAN [Concomitant]

REACTIONS (10)
  - NEOPLASM MALIGNANT [None]
  - COUGH [None]
  - WEIGHT INCREASED [None]
  - ALOPECIA [None]
  - ARTHRALGIA [None]
  - MOOD SWINGS [None]
  - TOOTH EROSION [None]
  - OSTEOPOROSIS [None]
  - APHASIA [None]
  - BACK PAIN [None]
